FAERS Safety Report 6415922-X (Version None)
Quarter: 2009Q4

REPORT INFORMATION
  Report Type: 
  Country: None (occurrence: None)
  Receive Date: 20091027
  Receipt Date: 20091019
  Transmission Date: 20100525
  Serious: Yes (Hospitalization)
  Sender: FDA-Public Use
  Company Number: A0813073A

PATIENT
  Age: 59 Year
  Sex: Female

DRUGS (6)
  1. LAMICTAL [Suspect]
     Dosage: 100MG TWICE PER DAY
     Route: 048
     Dates: start: 20090201
  2. DILANTIN [Suspect]
     Dosage: 60MG TWICE PER DAY
     Route: 048
     Dates: start: 20090201, end: 20090425
  3. FENTANYL-100 [Suspect]
     Dosage: 25MG EVERY 3 DAYS
     Route: 062
  4. BACLOFEN [Suspect]
     Indication: DRUG USE FOR UNKNOWN INDICATION
     Dosage: 5MG FOUR TIMES PER DAY
     Route: 048
     Dates: start: 20090806
  5. KEPPRA [Suspect]
     Route: 048
  6. TRAMADOL HCL [Suspect]
     Indication: DRUG USE FOR UNKNOWN INDICATION

REACTIONS (9)
  - CONFUSIONAL STATE [None]
  - CONVULSION [None]
  - ELECTROLYTE DEPLETION [None]
  - HEADACHE [None]
  - HYPERHIDROSIS [None]
  - LOSS OF CONSCIOUSNESS [None]
  - THERAPEUTIC AGENT TOXICITY [None]
  - URINARY TRACT INFECTION [None]
  - VENTRICULAR TACHYCARDIA [None]
